FAERS Safety Report 11144776 (Version 2)
Quarter: 2015Q2

REPORT INFORMATION
  Report Type: Spontaneous
  Country: CH (occurrence: CH)
  Receive Date: 20150528
  Receipt Date: 20150528
  Transmission Date: 20150821
  Serious: Yes (Hospitalization)
  Sender: FDA-Public Use
  Company Number: CH-BAYER-2015-257847

PATIENT
  Age: 56 Year
  Sex: Female

DRUGS (4)
  1. TAVEGYL [Concomitant]
     Active Substance: CLEMASTINE FUMARATE
  2. SOLU-CORTEF [Concomitant]
     Active Substance: HYDROCORTISONE SODIUM SUCCINATE
     Dosage: UNK
  3. ULTRAVIST [Suspect]
     Active Substance: IOPROMIDE
     Indication: IMAGING PROCEDURE
     Dosage: 100 ML, ONCE
     Route: 042
     Dates: start: 20150421, end: 20150421
  4. ULTRAVIST [Suspect]
     Active Substance: IOPROMIDE
     Indication: PULMONARY EMBOLISM

REACTIONS (5)
  - Hypersensitivity [Unknown]
  - Nausea [Unknown]
  - Dyspnoea [Unknown]
  - Salivary hypersecretion [Unknown]
  - Breast pain [Unknown]

NARRATIVE: CASE EVENT DATE: 20150421
